FAERS Safety Report 20480605 (Version 6)
Quarter: 2022Q4

REPORT INFORMATION
  Report Type: Spontaneous
  Country: JP (occurrence: JP)
  Receive Date: 20220216
  Receipt Date: 20221103
  Transmission Date: 20230113
  Serious: Yes (Hospitalization)
  Sender: FDA-Public Use
  Company Number: JP-Eisai-202111587_LEN_P_1

PATIENT
  Age: 48 Year
  Sex: Female

DRUGS (3)
  1. LENVIMA [Suspect]
     Active Substance: LENVATINIB
     Indication: Papillary thyroid cancer
     Route: 048
     Dates: start: 20211108, end: 20220208
  2. LENVIMA [Suspect]
     Active Substance: LENVATINIB
     Route: 048
     Dates: start: 20220325, end: 20220331
  3. LENVIMA [Suspect]
     Active Substance: LENVATINIB
     Route: 048
     Dates: start: 20220401

REACTIONS (5)
  - Cardiac failure [Recovered/Resolved]
  - Palpitations [Unknown]
  - Dyspnoea exertional [Unknown]
  - Pulmonary congestion [Unknown]
  - Congestive cardiomyopathy [Unknown]

NARRATIVE: CASE EVENT DATE: 20220101
